FAERS Safety Report 4907466-9 (Version None)
Quarter: 2006Q1

REPORT INFORMATION
  Report Type: 
  Country: None (occurrence: None)
  Receive Date: 20060210
  Receipt Date: 20051003
  Transmission Date: 20060701
  Serious: Yes (Hospitalization)
  Sender: FDA-Public Use
  Company Number: US-MERCK-0510USA02653

PATIENT
  Age: 40 Year
  Sex: Male

DRUGS (8)
  1. VIOXX [Suspect]
     Route: 048
  2. GLUCOPHAGE [Concomitant]
     Route: 065
  3. GLUCOTROL [Concomitant]
     Route: 065
  4. ACTOS [Concomitant]
     Route: 065
  5. NEURONTIN [Concomitant]
     Route: 065
  6. LIPITOR [Concomitant]
     Route: 065
  7. HYZAAR [Concomitant]
     Route: 065
  8. DEMADEX [Concomitant]
     Route: 065

REACTIONS (3)
  - ANGINA UNSTABLE [None]
  - CHEST PAIN [None]
  - HEADACHE [None]
